FAERS Safety Report 16172017 (Version 1)
Quarter: 2019Q2

REPORT INFORMATION
  Report Type: Spontaneous
  Country: US (occurrence: US)
  Receive Date: 20190409
  Receipt Date: 20190409
  Transmission Date: 20190711
  Serious: No
  Sender: FDA-Public Use
  Company Number: US-AMGEN-USASP2019053638

PATIENT
  Sex: Female

DRUGS (11)
  1. FUROSEMIDE. [Concomitant]
     Active Substance: FUROSEMIDE
  2. CARVEDILOL. [Concomitant]
     Active Substance: CARVEDILOL
  3. GABAPENTIN. [Concomitant]
     Active Substance: GABAPENTIN
  4. METHADONE HCL [Concomitant]
     Active Substance: METHADONE HYDROCHLORIDE
  5. PANTOPRAZOLE SODIUM. [Concomitant]
     Active Substance: PANTOPRAZOLE SODIUM
  6. TRADJENTA [Concomitant]
     Active Substance: LINAGLIPTIN
  7. REPATHA [Suspect]
     Active Substance: EVOLOCUMAB
     Indication: TYPE IIA HYPERLIPIDAEMIA
     Dosage: 140 MILLIGRAM, Q2WK
     Route: 058
  8. OXYCODONE HYDROCHLORIDE. [Concomitant]
     Active Substance: OXYCODONE HYDROCHLORIDE
  9. BRILINTA [Concomitant]
     Active Substance: TICAGRELOR
  10. LANTUS [Concomitant]
     Active Substance: INSULIN GLARGINE
  11. FERROUS SULFATE. [Concomitant]
     Active Substance: FERROUS SULFATE

REACTIONS (1)
  - Adverse drug reaction [Not Recovered/Not Resolved]
